FAERS Safety Report 4993450-6 (Version None)
Quarter: 2006Q2

REPORT INFORMATION
  Report Type: 
  Country: None (occurrence: None)
  Receive Date: 20060504
  Receipt Date: 20060504
  Transmission Date: 20061013
  Serious: Yes (Hospitalization, Other)
  Sender: FDA-Public Use
  Company Number: None

PATIENT
  Age: 45 Year
  Sex: Male
  Weight: 72.5755 kg

DRUGS (1)
  1. DILANTIN [Suspect]
     Indication: CEREBROVASCULAR ACCIDENT
     Dosage: 100 MG TID PO
     Route: 048
     Dates: start: 20060422, end: 20060502

REACTIONS (1)
  - RASH GENERALISED [None]
